FAERS Safety Report 6826699-8 (Version None)
Quarter: 2010Q2

REPORT INFORMATION
  Report Type: 
  Country: None (occurrence: None)
  Receive Date: 20100520
  Receipt Date: 20090514
  Transmission Date: 20101027
  Serious: Yes (Other)
  Sender: FDA-Public Use
  Company Number: 2009213393

PATIENT
  Age: 72 Year
  Sex: Female
  Weight: 66 kg

DRUGS (6)
  1. PROVERA [Suspect]
     Indication: MENOPAUSE
     Dates: start: 19710101, end: 19950101
  2. PREMARIN [Suspect]
     Indication: MENOPAUSE
     Dates: start: 19710101, end: 19950101
  3. PREMPRO [Suspect]
     Indication: MENOPAUSE
     Dates: start: 19950101, end: 20000101
  4. LANOXIN [Concomitant]
  5. SYNTHROID [Concomitant]
  6. COUMADIN [Concomitant]

REACTIONS (1)
  - BREAST CANCER FEMALE [None]
